FAERS Safety Report 16271373 (Version 2)
Quarter: 2019Q2

REPORT INFORMATION
  Report Type: Spontaneous
  Country: DE (occurrence: DE)
  Receive Date: 20190503
  Receipt Date: 20190509
  Transmission Date: 20190711
  Serious: Yes (Hospitalization, Other)
  Sender: FDA-Public Use
  Company Number: DE-TEVA-2019-DE-1043745

PATIENT
  Sex: Male
  Weight: 78 kg

DRUGS (2)
  1. MOXIFLOXACIN. [Suspect]
     Active Substance: MOXIFLOXACIN
     Indication: SUPERINFECTION
     Route: 048
     Dates: start: 20181210, end: 20181218
  2. MOXIFLOXACIN. [Suspect]
     Active Substance: MOXIFLOXACIN
     Indication: INFLUENZA

REACTIONS (2)
  - Depression [Recovered/Resolved]
  - Depression suicidal [Recovered/Resolved]

NARRATIVE: CASE EVENT DATE: 201812
